FAERS Safety Report 6417995-7 (Version None)
Quarter: 2009Q4

REPORT INFORMATION
  Report Type: 
  Country: None (occurrence: None)
  Receive Date: 20091019
  Receipt Date: 20091007
  Transmission Date: 20100525
  Serious: No
  Sender: FDA-Public Use
  Company Number: US-144842

PATIENT
  Sex: Female
  Weight: 56.6 kg

DRUGS (3)
  1. WINRHO SDF LIQUID [Suspect]
     Indication: IDIOPATHIC THROMBOCYTOPENIC PURPURA
     Dosage: (5.3 UG/KG, QD), (5.3 UG/KG QD), (5.3 UG/KG QD)
     Dates: start: 20090731, end: 20090731
  2. WINRHO SDF LIQUID [Suspect]
     Indication: IDIOPATHIC THROMBOCYTOPENIC PURPURA
     Dosage: (5.3 UG/KG, QD), (5.3 UG/KG QD), (5.3 UG/KG QD)
     Dates: start: 20090802, end: 20090802
  3. WINRHO SDF LIQUID [Suspect]
     Indication: IDIOPATHIC THROMBOCYTOPENIC PURPURA
     Dosage: (5.3 UG/KG, QD), (5.3 UG/KG QD), (5.3 UG/KG QD)
     Dates: start: 20090902, end: 20090902

REACTIONS (2)
  - DRUG INEFFECTIVE [None]
  - MEDICATION ERROR [None]
